FAERS Safety Report 24045291 (Version 3)
Quarter: 2025Q3

REPORT INFORMATION
  Report Type: Spontaneous
  Country: US (occurrence: US)
  Receive Date: 20240703
  Receipt Date: 20250715
  Transmission Date: 20251021
  Serious: Yes (Other)
  Sender: ABBVIE
  Company Number: US-ABBVIE-5822402

PATIENT
  Sex: Female
  Weight: 70 kg

DRUGS (4)
  1. NAMENDA XR [Suspect]
     Active Substance: MEMANTINE HYDROCHLORIDE
     Indication: Vascular dementia
     Route: 048
  2. NAMENDA XR [Suspect]
     Active Substance: MEMANTINE HYDROCHLORIDE
     Indication: Vascular dementia
     Route: 048
     Dates: start: 2023
  3. ARICEPT [Concomitant]
     Active Substance: DONEPEZIL HYDROCHLORIDE
     Indication: Vascular dementia
  4. MEMANTINE [Suspect]
     Active Substance: MEMANTINE
     Indication: Vascular dementia
     Route: 048
     Dates: start: 2018, end: 2018

REACTIONS (7)
  - Suicidal ideation [Unknown]
  - Drug hypersensitivity [Unknown]
  - Illness [Recovered/Resolved]
  - Memory impairment [Recovered/Resolved]
  - Diarrhoea [Unknown]
  - Drug ineffective [Recovered/Resolved]
  - Headache [Recovered/Resolved]

NARRATIVE: CASE EVENT DATE: 20180101
